FAERS Safety Report 19034015 (Version 5)
Quarter: 2021Q4

REPORT INFORMATION
  Report Type: Report from Study
  Country: CN (occurrence: CN)
  Receive Date: 20210319
  Receipt Date: 20211014
  Transmission Date: 20220303
  Serious: Yes (Death, Hospitalization)
  Sender: FDA-Public Use
  Company Number: CN-PFIZER INC-2021264679

PATIENT
  Age: 77 Year
  Sex: Female
  Weight: 47.5 kg

DRUGS (3)
  1. PACLITAXEL [Suspect]
     Active Substance: PACLITAXEL
     Indication: Non-small cell lung cancer
     Dosage: 200 MG/M2, EVERY 3 WEEKS
     Route: 042
     Dates: start: 20201204
  2. CARBOPLATIN [Suspect]
     Active Substance: CARBOPLATIN
     Indication: Non-small cell lung cancer
     Dosage: AUC 6, EVERY 3 WEEKS
     Route: 042
     Dates: start: 20201204
  3. INVESTIGATIONAL PRODUCT [Suspect]
     Active Substance: INVESTIGATIONAL PRODUCT
     Indication: Non-small cell lung cancer
     Dosage: UNK UNK, EVERY 3 WEEKS
     Route: 042
     Dates: start: 20201204, end: 20210114

REACTIONS (2)
  - Pneumonia [Recovered/Resolved]
  - Pneumonia [Fatal]

NARRATIVE: CASE EVENT DATE: 20210121
